FAERS Safety Report 6696472-2 (Version None)
Quarter: 2010Q2

REPORT INFORMATION
  Report Type: 
  Country: None (occurrence: None)
  Receive Date: 20100426
  Receipt Date: 20100421
  Transmission Date: 20101027
  Serious: No
  Sender: FDA-Public Use
  Company Number: US-JNJFOC-20100402003

PATIENT
  Sex: Female
  Weight: 56.7 kg

DRUGS (7)
  1. DURAGESIC-100 [Suspect]
     Indication: OSTEOPOROSIS
     Route: 062
  2. DURAGESIC-100 [Suspect]
     Route: 062
  3. ALLEGRA [Concomitant]
     Indication: PRE-EXISTING DISEASE
     Route: 048
  4. TEKTURNA [Concomitant]
     Indication: HYPERTENSION
     Route: 048
  5. LESCOL [Concomitant]
     Indication: BLOOD CHOLESTEROL
     Route: 048
  6. SINGULAIR [Concomitant]
     Indication: HYPERSENSITIVITY
     Route: 048
  7. CELEBREX [Concomitant]
     Indication: ARTHRALGIA
     Route: 065

REACTIONS (3)
  - ARTHRALGIA [None]
  - DRUG INEFFECTIVE [None]
  - INCORRECT DOSE ADMINISTERED [None]
